FAERS Safety Report 10906344 (Version 1)
Quarter: 2015Q1

REPORT INFORMATION
  Report Type: Spontaneous
  Country: US (occurrence: US)
  Receive Date: 20150311
  Receipt Date: 20150311
  Transmission Date: 20150721
  Serious: No
  Sender: FDA-Public Use
  Company Number: US-009507513-1503USA003728

PATIENT
  Age: 84 Year
  Sex: Female

DRUGS (1)
  1. REMERON [Suspect]
     Active Substance: MIRTAZAPINE
     Dosage: 30 MG, UNK
     Route: 048

REACTIONS (6)
  - Dyspnoea [Unknown]
  - Muscle rigidity [Unknown]
  - Muscle twitching [Unknown]
  - Peripheral swelling [Unknown]
  - Paraesthesia [Unknown]
  - Mouth swelling [Unknown]
